FAERS Safety Report 8260455-1 (Version None)
Quarter: 2012Q2

REPORT INFORMATION
  Report Type: 
  Country: None (occurrence: None)
  Receive Date: 20120404
  Receipt Date: 20120327
  Transmission Date: 20120825
  Serious: Yes (Death, Other)
  Sender: FDA-Public Use
  Company Number: JP-MERCK-1203USA01132

PATIENT
  Age: 60 Year
  Sex: Male

DRUGS (3)
  1. REVLIMID [Suspect]
     Route: 065
  2. ZOLPIDEM [Concomitant]
     Route: 065
  3. PEPCID RPD [Suspect]
     Route: 048

REACTIONS (1)
  - HAEMOLYTIC ANAEMIA [None]
